FAERS Safety Report 9222432 (Version 1)
Quarter: 2013Q2

REPORT INFORMATION
  Report Type: Spontaneous
  Country: BR (occurrence: BR)
  Receive Date: 20130410
  Receipt Date: 20130410
  Transmission Date: 20140414
  Serious: Yes (Life-Threatening, Hospitalization)
  Sender: FDA-Public Use
  Company Number: BR-SANOFI-AVENTIS-2012SA090515

PATIENT
  Age: 38 Year
  Sex: Female
  Weight: 75 kg

DRUGS (2)
  1. CLEXANE [Suspect]
     Indication: PULMONARY EMBOLISM
     Dosage: 1 AMPOULE  4000 IU
     Route: 030
     Dates: start: 201206, end: 20130326
  2. PANTOPRAZOLE [Suspect]
     Indication: GASTRIC DISORDER
     Dosage: UNSPECIFIED DOSE
     Route: 048

REACTIONS (9)
  - Placenta accreta [Recovered/Resolved]
  - Foetal placental thrombosis [Recovered/Resolved]
  - Thrombosis [Recovered/Resolved]
  - Uterine haemorrhage [Recovered/Resolved]
  - Pulmonary oedema [Recovered/Resolved]
  - Cardiac disorder [Recovered/Resolved]
  - Hypotension [Recovered/Resolved]
  - Exposure during pregnancy [Unknown]
  - Incorrect route of drug administration [Unknown]
